FAERS Safety Report 13581860 (Version 1)
Quarter: 2017Q2

REPORT INFORMATION
  Report Type: Spontaneous
  Country: FR (occurrence: FR)
  Receive Date: 20170525
  Receipt Date: 20170525
  Transmission Date: 20170830
  Serious: Yes (Hospitalization)
  Sender: FDA-Public Use
  Company Number: FR-TELIGENT, INC-IGIL20170227

PATIENT
  Age: 82 Year
  Sex: Female

DRUGS (4)
  1. CEFTAZIDIME. [Suspect]
     Active Substance: CEFTAZIDIME
     Indication: OTITIS EXTERNA
     Dosage: 2 G
     Route: 042
     Dates: start: 20160804
  2. OFLOCET [Suspect]
     Active Substance: OFLOXACIN
     Indication: OTITIS EXTERNA
     Dosage: 1.5 MG/0.5ML
     Route: 001
     Dates: start: 20160804
  3. ARIXTRA [Suspect]
     Active Substance: FONDAPARINUX SODIUM
     Indication: THROMBOPHLEBITIS
     Dosage: 7.5 MG/0.6 ML, ONE DOSAGE FORM
     Route: 058
     Dates: start: 20160824
  4. CIFLOX [Suspect]
     Active Substance: CIPROFLOXACIN
     Indication: OTITIS EXTERNA
     Dosage: 500 MG
     Route: 048
     Dates: start: 20160728

REACTIONS (3)
  - Dizziness [Unknown]
  - Deafness [Not Recovered/Not Resolved]
  - Vertigo [Recovered/Resolved]

NARRATIVE: CASE EVENT DATE: 2016
